FAERS Safety Report 6360925-7 (Version None)
Quarter: 2009Q3

REPORT INFORMATION
  Report Type: 
  Country: None (occurrence: None)
  Receive Date: 20090918
  Receipt Date: 20090909
  Transmission Date: 20100115
  Serious: Yes (Other)
  Sender: FDA-Public Use
  Company Number: PHEH2009US07492

PATIENT
  Sex: Female

DRUGS (3)
  1. RECLAST [Suspect]
     Indication: OSTEOPOROSIS
     Dosage: 5 MG, ONCE/SINGLE
     Dates: start: 20080101, end: 20080101
  2. ORENCIA [Concomitant]
     Dosage: UNK, UNK
  3. ALENDRONATE SODIUM [Concomitant]
     Dosage: UNK, UNK

REACTIONS (3)
  - DENTAL DISCOMFORT [None]
  - GINGIVITIS [None]
  - OSTEONECROSIS [None]
